FAERS Safety Report 5729838-5 (Version None)
Quarter: 2008Q2

REPORT INFORMATION
  Report Type: 
  Country: None (occurrence: None)
  Receive Date: 20080501
  Receipt Date: 20080421
  Transmission Date: 20081010
  Serious: Yes (Death)
  Sender: FDA-Public Use
  Company Number: 000736

PATIENT
  Age: 13 Year
  Sex: Male

DRUGS (7)
  1. BUSULFEX [Suspect]
     Indication: STEM CELL TRANSPLANT
     Dosage: 15.3 ML INTRAVENOUS; 20.4 ML; INTRAVENOUS; 5.1 ML, INTRAVENOUS
     Route: 042
     Dates: start: 20070821, end: 20070821
  2. BUSULFEX [Suspect]
     Indication: STEM CELL TRANSPLANT
     Dosage: 15.3 ML INTRAVENOUS; 20.4 ML; INTRAVENOUS; 5.1 ML, INTRAVENOUS
     Route: 042
     Dates: start: 20070822, end: 20070824
  3. BUSULFEX [Suspect]
     Indication: STEM CELL TRANSPLANT
     Dosage: 15.3 ML INTRAVENOUS; 20.4 ML; INTRAVENOUS; 5.1 ML, INTRAVENOUS
     Route: 042
     Dates: start: 20070825, end: 20070825
  4. FLUDARABINE PHOSPHATE [Concomitant]
  5. CLONAZEPAM [Concomitant]
  6. NEUPOGEN [Concomitant]
  7. CYCLOSPORINE [Concomitant]

REACTIONS (29)
  - ALANINE AMINOTRANSFERASE INCREASED [None]
  - ANOREXIA [None]
  - ASCITES [None]
  - ASPARTATE AMINOTRANSFERASE INCREASED [None]
  - BLOOD AMYLASE ABNORMAL [None]
  - BLOOD BILIRUBIN INCREASED [None]
  - BLOOD LACTATE DEHYDROGENASE INCREASED [None]
  - CARDIAC ARREST [None]
  - CONVULSION [None]
  - COUGH [None]
  - DEPRESSED LEVEL OF CONSCIOUSNESS [None]
  - DIARRHOEA [None]
  - HEADACHE [None]
  - HEPATOSPLENOMEGALY [None]
  - HYDROCEPHALUS [None]
  - HYPERTENSION [None]
  - MALAISE [None]
  - NAUSEA [None]
  - NO THERAPEUTIC RESPONSE [None]
  - OXYGEN SATURATION DECREASED [None]
  - PYREXIA [None]
  - REFRACTORINESS TO PLATELET TRANSFUSION [None]
  - RESPIRATORY ARREST [None]
  - RESPIRATORY DISORDER [None]
  - STEM CELL TRANSPLANT [None]
  - SUBARACHNOID HAEMORRHAGE [None]
  - THROMBOTIC MICROANGIOPATHY [None]
  - VOMITING [None]
  - WEIGHT INCREASED [None]
